FAERS Safety Report 25783874 (Version 2)
Quarter: 2025Q3

REPORT INFORMATION
  Report Type: Spontaneous
  Country: US (occurrence: US)
  Receive Date: 20250910
  Receipt Date: 20250929
  Transmission Date: 20251020
  Serious: No
  Sender: ROCHE
  Company Number: US-ROCHE-10000378882

PATIENT
  Sex: Female
  Weight: 54.43 kg

DRUGS (4)
  1. XOLAIR [Suspect]
     Active Substance: OMALIZUMAB
     Indication: Chronic spontaneous urticaria
     Dosage: STRENGTH:150MG/ML
     Route: 058
     Dates: start: 20250613
  2. XOLAIR [Suspect]
     Active Substance: OMALIZUMAB
  3. MONTELUKAST [Concomitant]
     Active Substance: MONTELUKAST
     Indication: Asthma
  4. ALBUTEROL [Concomitant]
     Active Substance: ALBUTEROL
     Indication: Asthma
     Dosage: 90 MCG

REACTIONS (1)
  - Urticaria [Unknown]
